FAERS Safety Report 10985652 (Version 1)
Quarter: 2015Q2

REPORT INFORMATION
  Report Type: Spontaneous
  Country: US (occurrence: US)
  Receive Date: 20150404
  Receipt Date: 20150404
  Transmission Date: 20150821
  Serious: No
  Sender: FDA-Public Use
  Company Number: US-SA-2015SA010955

PATIENT
  Age: 69 Year
  Sex: Female

DRUGS (3)
  1. ALLEGRA-D [Suspect]
     Active Substance: FEXOFENADINE\PSEUDOEPHEDRINE
     Indication: SINUSITIS
     Route: 048
     Dates: start: 20150124
  2. ALLEGRA-D [Suspect]
     Active Substance: FEXOFENADINE\PSEUDOEPHEDRINE
     Indication: BRONCHITIS
     Route: 048
     Dates: start: 20150124
  3. ALLEGRA-D [Suspect]
     Active Substance: FEXOFENADINE\PSEUDOEPHEDRINE
     Indication: EAR INFECTION
     Route: 048
     Dates: start: 20150124

REACTIONS (1)
  - Oropharyngeal pain [Not Recovered/Not Resolved]
